FAERS Safety Report 15834830 (Version 2)
Quarter: 2019Q1

REPORT INFORMATION
  Report Type: Spontaneous
  Country: SK (occurrence: SK)
  Receive Date: 20190116
  Receipt Date: 20190130
  Transmission Date: 20190417
  Serious: Yes (Hospitalization, Other)
  Sender: FDA-Public Use
  Company Number: SK-ABBVIE-19P-260-2624887-00

PATIENT
  Age: 56 Year
  Sex: Male
  Weight: 89 kg

DRUGS (2)
  1. ADALIMUMAB [Suspect]
     Active Substance: ADALIMUMAB
     Indication: HIDRADENITIS
     Dosage: UNK
     Route: 058
     Dates: start: 201508, end: 2017
  2. METFORMIN [Concomitant]
     Active Substance: METFORMIN HYDROCHLORIDE
     Indication: TYPE 2 DIABETES MELLITUS

REACTIONS (5)
  - Cerebral haemorrhage [Unknown]
  - Hypergammaglobulinaemia benign monoclonal [Unknown]
  - Pleural effusion [Unknown]
  - Cardiomyopathy [Unknown]
  - Dermatitis psoriasiform [Unknown]

NARRATIVE: CASE EVENT DATE: 2016
